FAERS Safety Report 6422878-2 (Version None)
Quarter: 2009Q4

REPORT INFORMATION
  Report Type: 
  Country: None (occurrence: None)
  Receive Date: 20091102
  Receipt Date: 20091026
  Transmission Date: 20100525
  Serious: Yes (Death)
  Sender: FDA-Public Use
  Company Number: BE-ABBOTT-09P-013-0604631-00

PATIENT
  Sex: Male
  Weight: 70 kg

DRUGS (2)
  1. LUCRIN DEPOT [Suspect]
     Indication: PROSTATE CANCER
     Dates: start: 20070724
  2. BICALUTAMIDE [Concomitant]
     Indication: DRUG USE FOR UNKNOWN INDICATION
     Dates: start: 20070724

REACTIONS (1)
  - METASTASES TO BONE [None]
